FAERS Safety Report 5291794-4 (Version None)
Quarter: 2007Q2

REPORT INFORMATION
  Report Type: 
  Country: None (occurrence: None)
  Receive Date: 20070410
  Receipt Date: 20070405
  Transmission Date: 20071010
  Serious: Yes (Death)
  Sender: FDA-Public Use
  Company Number: JP-AVENTIS-200710867JP

PATIENT
  Age: 77 Year
  Sex: Female
  Weight: 27 kg

DRUGS (7)
  1. AMARYL [Suspect]
     Indication: DIABETES MELLITUS
     Route: 048
     Dates: start: 20070320, end: 20070321
  2. AMARYL [Suspect]
     Route: 048
     Dates: start: 20070322
  3. MYSLEE [Concomitant]
     Dates: start: 20061208
  4. ASASION [Concomitant]
     Dosage: DOSE QUANTITY: .125
     Dates: start: 20061208
  5. PELEX [Concomitant]
     Dates: start: 20070319
  6. THYRADIN [Concomitant]
  7. INSULINS + ANA.,INTERIM.-ACT.,COMB.W/FAST ACT [Concomitant]
     Dosage: DOSE: 6-4- UNITS

REACTIONS (1)
  - HEPATITIS FULMINANT [None]
